FAERS Safety Report 9839400 (Version 1)
Quarter: 2014Q1

REPORT INFORMATION
  Report Type: Report from Study
  Country: US (occurrence: US)
  Receive Date: 20140123
  Receipt Date: 20140123
  Transmission Date: 20141002
  Serious: Yes (Death)
  Sender: FDA-Public Use
  Company Number: US-ROCHE-1337056

PATIENT
  Sex: 0

DRUGS (1)
  1. XELODA [Suspect]
     Indication: RECTAL CANCER
     Dosage: 500MG TAB , 2 TAB BID AND 150MG TAB, 2 TAB?BID FOR 14 DAYS ON AND 14 DAYS OFF.
     Route: 065

REACTIONS (1)
  - Death [Fatal]
